FAERS Safety Report 20108495 (Version 1)
Quarter: 2021Q4

REPORT INFORMATION
  Report Type: Spontaneous
  Country: US (occurrence: US)
  Receive Date: 20211124
  Receipt Date: 20211124
  Transmission Date: 20220303
  Serious: No
  Sender: FDA-Public Use
  Company Number: US-PERRIGO-21US029171

PATIENT
  Age: 67 Year
  Sex: Male
  Weight: 106.58 kg

DRUGS (4)
  1. POLYETHYLENE GLYCOL 3350 [Suspect]
     Active Substance: POLYETHYLENE GLYCOL 3350
     Indication: Constipation
     Dosage: 51 G, SINGLE
     Route: 048
     Dates: start: 20211005, end: 20211005
  2. METOPROLOL [Concomitant]
     Active Substance: METOPROLOL
     Indication: Atrioventricular block
     Dosage: UNK
     Route: 065
     Dates: start: 20190507
  3. LIPITOR [Concomitant]
     Active Substance: ATORVASTATIN CALCIUM
     Indication: Atrioventricular block
     Dosage: UNK
     Route: 065
     Dates: start: 20190507
  4. PLAVIX [Concomitant]
     Active Substance: CLOPIDOGREL BISULFATE
     Indication: Atrioventricular block
     Dosage: UNK
     Route: 065
     Dates: start: 20190507

REACTIONS (2)
  - Diarrhoea [Unknown]
  - Overdose [Recovered/Resolved]

NARRATIVE: CASE EVENT DATE: 20211005
